FAERS Safety Report 24849745 (Version 1)
Quarter: 2025Q1

REPORT INFORMATION
  Report Type: Spontaneous
  Country: FR (occurrence: FR)
  Receive Date: 20250116
  Receipt Date: 20250116
  Transmission Date: 20250408
  Serious: Yes (Other)
  Sender: ALEXION PHARMACEUTICALS
  Company Number: FR-SA-2025SA010252

PATIENT
  Age: 8 Week
  Weight: 5.8 kg

DRUGS (4)
  1. BEYFORTUS [Suspect]
     Active Substance: NIRSEVIMAB-ALIP
     Indication: Prophylaxis
  2. BEYFORTUS [Suspect]
     Active Substance: NIRSEVIMAB-ALIP
     Route: 058
  3. BEYFORTUS [Suspect]
     Active Substance: NIRSEVIMAB-ALIP
  4. BEYFORTUS [Suspect]
     Active Substance: NIRSEVIMAB-ALIP
     Route: 058

REACTIONS (2)
  - Respiratory syncytial virus bronchiolitis [Unknown]
  - Feeding disorder [Unknown]
